FAERS Safety Report 7159453-0 (Version None)
Quarter: 2010Q4

REPORT INFORMATION
  Report Type: 
  Country: None (occurrence: None)
  Receive Date: 20101214
  Receipt Date: 20100916
  Transmission Date: 20110411
  Serious: No
  Sender: FDA-Public Use
  Company Number: US-ASTRAZENECA-2010SE42199

PATIENT
  Age: 70 Year
  Sex: Female
  Weight: 69.9 kg

DRUGS (8)
  1. CRESTOR [Suspect]
     Indication: BLOOD CHOLESTEROL INCREASED
     Route: 048
     Dates: start: 20060101
  2. CRESTOR [Suspect]
     Route: 048
  3. ATENOLOL [Concomitant]
  4. OMEPRAZOLE [Concomitant]
  5. ZOLOFT [Concomitant]
  6. LEVOTHYROXINE [Concomitant]
  7. VITAMINS [Concomitant]
  8. FISH OIL [Concomitant]

REACTIONS (6)
  - BODY HEIGHT DECREASED [None]
  - BURSITIS [None]
  - HYPERCHOLESTEROLAEMIA [None]
  - MUSCULAR WEAKNESS [None]
  - MYALGIA [None]
  - NERVE COMPRESSION [None]
